FAERS Safety Report 13318821 (Version 1)
Quarter: 2017Q1

REPORT INFORMATION
  Report Type: Spontaneous
  Country: AU (occurrence: AU)
  Receive Date: 20170310
  Receipt Date: 20170310
  Transmission Date: 20170428
  Serious: Yes (Death)
  Sender: FDA-Public Use
  Company Number: AU-009507513-1609AUS000693

PATIENT

DRUGS (1)
  1. KEYTRUDA [Suspect]
     Active Substance: PEMBROLIZUMAB
     Indication: NEOPLASM MALIGNANT
     Dosage: 2 MG/KG, Q3W
     Route: 042
     Dates: start: 2015, end: 2015

REACTIONS (3)
  - Condition aggravated [Fatal]
  - Product use issue [Unknown]
  - Immune system disorder [Fatal]

NARRATIVE: CASE EVENT DATE: 2015
